FAERS Safety Report 4273158-5 (Version None)
Quarter: 2004Q1

REPORT INFORMATION
  Report Type: 
  Country: None (occurrence: None)
  Receive Date: 20040116
  Receipt Date: 20031126
  Transmission Date: 20041129
  Serious: Yes (Hospitalization, Other)
  Sender: FDA-Public Use
  Company Number: PHNR2003AU01655

PATIENT
  Age: 55 Year
  Sex: Female

DRUGS (6)
  1. TEGRETOL [Suspect]
     Indication: EPILEPSY
     Dosage: 400 MG, BID
     Route: 048
     Dates: start: 19910101
  2. DIET FORMULATIONS FOR TREATMENT OF OBESITY [Interacting]
     Dosage: UNK, UNK
     Dates: start: 20031101, end: 20031101
  3. DILANTIN [Concomitant]
     Dosage: UNSPECIFIED
  4. THYROXINE [Concomitant]
     Dosage: UNSPECIFIED
  5. NAPROSYN [Concomitant]
     Dosage: UNSPECIFIED
  6. ZANTAC [Concomitant]
     Dosage: UNSPECIFIED

REACTIONS (6)
  - CONDITION AGGRAVATED [None]
  - DRUG LEVEL DECREASED [None]
  - GLIOBLASTOMA [None]
  - GRAND MAL CONVULSION [None]
  - HEMIPLEGIA [None]
  - MENINGIOMA [None]
